FAERS Safety Report 5356469-1 (Version None)
Quarter: 2007Q2

REPORT INFORMATION
  Report Type: 
  Country: None (occurrence: None)
  Receive Date: 20070530
  Receipt Date: 20061023
  Transmission Date: 20071010
  Serious: Yes (Other)
  Sender: FDA-Public Use
  Company Number: US200609006420

PATIENT
  Sex: Female
  Weight: 91.2 kg

DRUGS (4)
  1. ZYPREXA(OLANSAPINE UNKNOWN FORMULATION) UNKNOWN [Suspect]
     Indication: MENTAL DISORDER
     Dosage: SEE IMAGE
     Dates: end: 20020101
  2. ZYPREXA(OLANSAPINE UNKNOWN FORMULATION) UNKNOWN [Suspect]
     Indication: MENTAL DISORDER
     Dosage: SEE IMAGE
     Dates: start: 19970101
  3. SERZONE [Concomitant]
  4. HALDOL SOLUTAB [Concomitant]

REACTIONS (7)
  - BLOOD CHOLESTEROL INCREASED [None]
  - BLOOD TRIGLYCERIDES INCREASED [None]
  - DIABETES MELLITUS [None]
  - DIABETIC HYPEROSMOLAR COMA [None]
  - HYPERTENSION [None]
  - OBESITY [None]
  - VISION BLURRED [None]
